FAERS Safety Report 11192722 (Version 1)
Quarter: 2015Q2

REPORT INFORMATION
  Report Type: Report from Study
  Country: BE (occurrence: BE)
  Receive Date: 20150616
  Receipt Date: 20150616
  Transmission Date: 20150821
  Serious: Yes (Other)
  Sender: FDA-Public Use
  Company Number: PHHY2015BE054892

PATIENT
  Age: 41 Year
  Sex: Male

DRUGS (1)
  1. GILENYA [Suspect]
     Active Substance: FINGOLIMOD HYDROCHLORIDE
     Indication: MULTIPLE SCLEROSIS
     Dosage: UNK UNK, QD
     Route: 048

REACTIONS (3)
  - Hypertensive crisis [Recovered/Resolved]
  - Hepatic enzyme increased [Recovered/Resolved]
  - Lymphocyte count decreased [Unknown]

NARRATIVE: CASE EVENT DATE: 20140103
